FAERS Safety Report 5065366-0 (Version None)
Quarter: 2006Q3

REPORT INFORMATION
  Report Type: 
  Country: None (occurrence: None)
  Receive Date: 20060707
  Receipt Date: 20060330
  Transmission Date: 20061208
  Serious: Yes (Life-Threatening)
  Sender: FDA-Public Use
  Company Number: SUS1-2006-00332

PATIENT
  Age: 20 Year
  Sex: Female

DRUGS (6)
  1. PENTASA [Suspect]
     Indication: COLITIS ULCERATIVE
     Dosage: 500 MG, 3X/DAY:TID, ORAL
     Route: 048
     Dates: start: 20060113, end: 20060223
  2. HYDROXYZINE PAMOATE [Concomitant]
  3. CLOBETASONE BUTYRATE (CLOBETASONE BUTYRATE) [Concomitant]
  4. CIPROFLOXACIN HYDROCHLORIDE (CIPROFLOXACIN HYDROCHLORIDE) [Concomitant]
  5. THEOPHYLLINE [Concomitant]
  6. AMBROXOL HYDROCHLORIDE (AMBROXOL HYDROCHLORIDE) [Concomitant]

REACTIONS (1)
  - PERICARDITIS [None]
